FAERS Safety Report 4864478-1 (Version None)
Quarter: 2005Q4

REPORT INFORMATION
  Report Type: 
  Country: None (occurrence: None)
  Receive Date: 20051222
  Receipt Date: 20050620
  Transmission Date: 20060501
  Serious: Yes (Hospitalization)
  Sender: FDA-Public Use
  Company Number: FR-BRISTOL-MYERS SQUIBB COMPANY-13012950

PATIENT
  Age: 49 Year
  Sex: Female

DRUGS (7)
  1. MODECATE INJ [Suspect]
     Indication: PSYCHOTIC DISORDER
     Dosage: DURATION OF THERAPY:  9 WEEKS 6 DAYS
     Route: 030
     Dates: start: 20050315
  2. HEPT-A-MYL [Suspect]
     Route: 048
     Dates: start: 20040927, end: 20050525
  3. BENERVA [Suspect]
     Indication: VITAMIN B COMPLEX DEFICIENCY
     Dosage: DURATION OF THERAPY:  5 WEEKS 3 DAYS
     Dates: start: 20050415, end: 20050525
  4. DIPIPERON [Suspect]
     Indication: AGGRESSION
     Dosage: DURATION OF THERAPY:  16 WEEKS 6 DAYS
     Route: 048
     Dates: start: 20050125, end: 20050526
  5. DEROXAT [Suspect]
     Indication: PSYCHOTIC DISORDER
     Dosage: DURATION OF THERAPY:  47 WEEKS, 3 DAYS
     Route: 048
     Dates: start: 20040625, end: 20050526
  6. TERCIAN [Concomitant]
     Indication: PSYCHOTIC DISORDER
     Route: 048
     Dates: start: 20050405
  7. DOLIPRANE [Concomitant]
     Indication: MYALGIA
     Route: 048
     Dates: start: 20050523, end: 20050526

REACTIONS (4)
  - ALANINE AMINOTRANSFERASE INCREASED [None]
  - ASPARTATE AMINOTRANSFERASE INCREASED [None]
  - CYTOLYTIC HEPATITIS [None]
  - RHABDOMYOLYSIS [None]
